FAERS Safety Report 9447363 (Version 1)
Quarter: 2013Q3

REPORT INFORMATION
  Report Type: Spontaneous
  Country: US (occurrence: US)
  Receive Date: 20130808
  Receipt Date: 20130808
  Transmission Date: 20140515
  Serious: No
  Sender: FDA-Public Use
  Company Number: US-009507513-1308USA002275

PATIENT
  Age: 83 Year
  Sex: Female

DRUGS (3)
  1. JANUMET XR [Suspect]
     Indication: TYPE 2 DIABETES MELLITUS
     Dosage: 50/1000 MG TWICE DAILY
     Route: 048
     Dates: start: 20130719
  2. CRESTOR [Concomitant]
  3. PLAVIX [Concomitant]

REACTIONS (1)
  - Diarrhoea [Not Recovered/Not Resolved]
